FAERS Safety Report 9699340 (Version 3)
Quarter: 2015Q3

REPORT INFORMATION
  Report Type: Spontaneous
  Country: US (occurrence: US)
  Receive Date: 20131120
  Receipt Date: 20150803
  Transmission Date: 20151125
  Serious: Yes (Hospitalization, Other)
  Sender: FDA-Public Use
  Company Number: US-GILEAD-2008-0015153

PATIENT
  Age: 61 Year
  Sex: Female

DRUGS (10)
  1. LETAIRIS [Suspect]
     Active Substance: AMBRISENTAN
     Dates: start: 2007, end: 200711
  2. NORPACE [Concomitant]
     Active Substance: DISOPYRAMIDE PHOSPHATE
     Route: 048
     Dates: start: 20071116
  3. ASPIRIN. [Concomitant]
     Active Substance: ASPIRIN
     Route: 048
     Dates: start: 20071116
  4. SUCRALFATE. [Concomitant]
     Active Substance: SUCRALFATE
     Dosage: BEFORE MEALS AND AT BED TIME
     Route: 048
     Dates: start: 20071116
  5. FISH OIL [Concomitant]
     Active Substance: FISH OIL
     Route: 048
     Dates: start: 20071116
  6. OXYGEN. [Concomitant]
     Active Substance: OXYGEN
     Route: 055
  7. LASIX [Concomitant]
     Active Substance: FUROSEMIDE
     Route: 048
     Dates: start: 20071116
  8. ADVAIR HFA [Concomitant]
     Active Substance: FLUTICASONE PROPIONATE\SALMETEROL XINAFOATE
     Route: 055
     Dates: start: 20071116
  9. LETAIRIS [Suspect]
     Active Substance: AMBRISENTAN
     Indication: PULMONARY ARTERIAL HYPERTENSION
     Route: 048
     Dates: start: 20071112, end: 20080114
  10. OS-CAL + D [Concomitant]
     Route: 048
     Dates: start: 20071116

REACTIONS (2)
  - Joint swelling [None]
  - Peripheral swelling [None]
